FAERS Safety Report 7270646-4 (Version None)
Quarter: 2011Q1

REPORT INFORMATION
  Report Type: 
  Country: None (occurrence: None)
  Receive Date: 20110202
  Receipt Date: 20110131
  Transmission Date: 20110831
  Serious: Yes (Other)
  Sender: FDA-Public Use
  Company Number: A0910710A

PATIENT
  Sex: Male

DRUGS (11)
  1. SORIATANE [Suspect]
     Dosage: 25MG PER DAY
     Route: 048
  2. KEFLEX [Concomitant]
  3. SIMVASTATIN [Concomitant]
  4. METFORMIN [Concomitant]
  5. TORSEMIDE [Concomitant]
  6. ALLOPURINOL [Concomitant]
  7. GLYBURIDE [Concomitant]
  8. CALCIUM SUPPLEMENTS [Concomitant]
  9. FOSAMAX [Concomitant]
  10. AMLODIPINE [Concomitant]
  11. ASPIRIN [Concomitant]

REACTIONS (5)
  - OFF LABEL USE [None]
  - BLOOD DISORDER [None]
  - AGGRESSION [None]
  - SKIN ATROPHY [None]
  - HAEMOGLOBIN DECREASED [None]
